FAERS Safety Report 6714273-3 (Version None)
Quarter: 2010Q2

REPORT INFORMATION
  Report Type: 
  Country: None (occurrence: None)
  Receive Date: 20100506
  Receipt Date: 20091026
  Transmission Date: 20101027
  Serious: No
  Sender: FDA-Public Use
  Company Number: US-BAUSCH-2009BL005374

PATIENT
  Age: 73 Year
  Sex: Female
  Weight: 56 kg

DRUGS (5)
  1. LOTEMAX [Suspect]
     Indication: EYE IRRITATION
     Route: 047
     Dates: start: 20090923, end: 20091004
  2. ACTONEL /USA/ [Concomitant]
     Route: 048
     Dates: start: 20040101
  3. FEXOFENADINE [Concomitant]
     Indication: SEASONAL ALLERGY
     Route: 048
     Dates: start: 20060101
  4. TRI-BORON PLUS [Concomitant]
  5. DUALTABS [Concomitant]

REACTIONS (6)
  - AXILLARY PAIN [None]
  - HEADACHE [None]
  - OROPHARYNGEAL PAIN [None]
  - PRURITUS GENERALISED [None]
  - RHINORRHOEA [None]
  - SALIVARY GLAND PAIN [None]
